FAERS Safety Report 18497209 (Version 1)
Quarter: 2020Q4

REPORT INFORMATION
  Report Type: Spontaneous
  Country: US (occurrence: US)
  Receive Date: 20201112
  Receipt Date: 20201112
  Transmission Date: 20210114
  Serious: Yes (Death, Hospitalization, Other)
  Sender: FDA-Public Use
  Company Number: US-PURDUE-USA-2020-0170110

PATIENT
  Age: 26 Year
  Sex: Male

DRUGS (2)
  1. OXYCODONE HCL CR TABLETS (SIMILAR TO NDA 22-272) [Suspect]
     Active Substance: OXYCODONE HYDROCHLORIDE
     Indication: PRODUCT USED FOR UNKNOWN INDICATION
     Dosage: UNK
     Route: 048
     Dates: start: 201102, end: 2014
  2. BUPRENORPHINE (SIMILAR TO NDA 21-306) [Suspect]
     Active Substance: BUPRENORPHINE
     Indication: PRODUCT USED FOR UNKNOWN INDICATION
     Dosage: UNK
     Route: 065

REACTIONS (10)
  - Encephalopathy [Recovered/Resolved]
  - Hyponatraemia [Recovered/Resolved]
  - Hepatitis [Unknown]
  - Hypokalaemia [Recovered/Resolved]
  - Death [Fatal]
  - Drug dependence [Unknown]
  - Delirium [Recovered/Resolved]
  - Rhabdomyolysis [Recovered/Resolved]
  - Fungaemia [Recovered/Resolved]
  - Substance abuse [Unknown]

NARRATIVE: CASE EVENT DATE: 2011
